FAERS Safety Report 9844395 (Version 1)
Quarter: 2014Q1

REPORT INFORMATION
  Report Type: Spontaneous
  Country: ES (occurrence: None)
  Receive Date: 20140123
  Receipt Date: 20140123
  Transmission Date: 20141002
  Serious: Yes (Hospitalization)
  Sender: FDA-Public Use
  Company Number: 2014P1000227

PATIENT
  Age: 81 Year
  Sex: Female

DRUGS (9)
  1. ESCITALOPRAM [Suspect]
     Indication: DEPRESSION
     Dosage: 10 MG; QD;
  2. ETORICOXIB [Suspect]
     Indication: BACK PAIN
     Dosage: 90 MG; QD;
  3. ACETAMYPHEN/TRAMADOL [Suspect]
     Indication: BACK PAIN
     Dosage: ;TID;
  4. TRAMADOL [Suspect]
     Indication: BACK PAIN
     Dosage: ; QD;
  5. DEFLAZACORT [Concomitant]
  6. SALBUTAMOL [Concomitant]
  7. MONTELUKAST [Concomitant]
  8. ATORVASTATIN [Concomitant]
  9. OMEPRAZOLE [Concomitant]

REACTIONS (6)
  - Drug interaction [None]
  - Aphasia [None]
  - Hemianopia [None]
  - Gamma-glutamyltransferase increased [None]
  - Back pain [None]
  - Haemorrhage [None]
